FAERS Safety Report 10674004 (Version 1)
Quarter: 2014Q4

REPORT INFORMATION
  Report Type: Spontaneous
  Country: US (occurrence: None)
  Receive Date: 20141222
  Receipt Date: 20141222
  Transmission Date: 20150529
  Serious: Yes (Death, Hospitalization)
  Sender: FDA-Public Use
  Company Number: 2014-US-016315

PATIENT
  Age: 70 Year
  Sex: Male
  Weight: 53 kg

DRUGS (10)
  1. ACYCLOVIR (ACICLOVIR) (ACICLOVIR) [Concomitant]
     Active Substance: ACYCLOVIR
  2. FLUTICASONE [Concomitant]
     Active Substance: FLUTICASONE\FLUTICASONE PROPIONATE
  3. ERWINAZE [Suspect]
     Active Substance: ASPARAGINASE ERWINIA CHRYSANTHEMI
     Indication: ACUTE MYELOID LEUKAEMIA RECURRENT
     Route: 042
     Dates: start: 20141110, end: 20141110
  4. PANTOPRAZOLE (PANTOPRAZOLE SODIUM SESQUIHYDRATE)?? [Concomitant]
  5. VORICONAZOLE. [Concomitant]
     Active Substance: VORICONAZOLE
  6. TRAMADOL (TRAMADOL HYDROCHLORIDE) [Concomitant]
     Active Substance: TRAMADOL HYDROCHLORIDE
  7. COMPAZINE [Concomitant]
     Active Substance: PROCHLORPERAZINE MALEATE
  8. LEVAQUIN [Concomitant]
     Active Substance: LEVOFLOXACIN
  9. LISINOPRIL. [Concomitant]
     Active Substance: LISINOPRIL
  10. VANCOMYCIN HCL (VANCOMYCIN HYDROCHLORIDE)? [Concomitant]

REACTIONS (1)
  - Colitis [None]

NARRATIVE: CASE EVENT DATE: 20141202
